FAERS Safety Report 7001165-8 (Version None)
Quarter: 2010Q3

REPORT INFORMATION
  Report Type: 
  Country: None (occurrence: None)
  Receive Date: 20100920
  Receipt Date: 20090721
  Transmission Date: 20110219
  Serious: Yes (Hospitalization)
  Sender: FDA-Public Use
  Company Number: US-ASTRAZENECA-2007UW12151

PATIENT
  Age: 40 Year
  Sex: Male
  Weight: 113.4 kg

DRUGS (18)
  1. SEROQUEL [Suspect]
     Indication: BIPOLAR DISORDER
     Route: 048
     Dates: start: 20010402
  2. SEROQUEL [Suspect]
     Indication: INSOMNIA
     Route: 048
     Dates: start: 20010402
  3. SEROQUEL [Suspect]
     Dosage: 25-400 MG DAILY, INTERMITTENTLY
     Route: 048
     Dates: start: 20010406, end: 20061103
  4. SEROQUEL [Suspect]
     Dosage: 25-400 MG DAILY, INTERMITTENTLY
     Route: 048
     Dates: start: 20010406, end: 20061103
  5. SEROQUEL [Suspect]
     Dosage: 100 MG - 300 MG
     Route: 048
     Dates: start: 20030204
  6. SEROQUEL [Suspect]
     Dosage: 100 MG - 300 MG
     Route: 048
     Dates: start: 20030204
  7. SEROQUEL [Suspect]
     Route: 048
     Dates: start: 20061205
  8. SEROQUEL [Suspect]
     Route: 048
     Dates: start: 20061205
  9. RISPERDAL [Concomitant]
     Dates: start: 20000301, end: 20000401
  10. XANAX [Concomitant]
     Route: 048
     Dates: start: 20020312
  11. ASPIRIN [Concomitant]
     Route: 048
     Dates: start: 20040617
  12. ATENOLOL [Concomitant]
     Dosage: 50 TO 60 MG
     Route: 048
     Dates: start: 20040617
  13. ZYPREXA [Concomitant]
     Dates: start: 20000401, end: 20000801
  14. ZYPREXA [Concomitant]
     Route: 048
     Dates: start: 20040617
  15. PAXIL [Concomitant]
     Dates: start: 20061205
  16. SINEQUAN [Concomitant]
     Dosage: 100 MG TWO HS
     Dates: start: 20061205
  17. ZETIA [Concomitant]
     Dates: start: 20060908
  18. TRICOR [Concomitant]
     Dates: start: 20060908

REACTIONS (4)
  - BLOOD CHOLESTEROL INCREASED [None]
  - DIABETES MELLITUS [None]
  - TYPE 2 DIABETES MELLITUS [None]
  - WEIGHT INCREASED [None]
